FAERS Safety Report 9885741 (Version 1)
Quarter: 2014Q1

REPORT INFORMATION
  Report Type: Spontaneous
  Country: DK (occurrence: DK)
  Receive Date: 20140210
  Receipt Date: 20140210
  Transmission Date: 20141002
  Serious: Yes (Other)
  Sender: FDA-Public Use
  Company Number: DK-TEVA-461721ISR

PATIENT
  Age: 59 Year
  Sex: Female

DRUGS (7)
  1. EMTHEXATE [Suspect]
     Indication: PSORIASIS
     Dosage: 2,5 MG X 5 WEEKLY
     Dates: start: 20140121
  2. LANTUS [Concomitant]
  3. NOVORAPID [Concomitant]
  4. SIMVASTATIN [Concomitant]
  5. APROVEL [Concomitant]
  6. METHADONE [Concomitant]
  7. LYRICA [Concomitant]

REACTIONS (1)
  - Hypoglycaemia [Not Recovered/Not Resolved]
